FAERS Safety Report 4840408-3 (Version None)
Quarter: 2005Q4

REPORT INFORMATION
  Report Type: 
  Country: None (occurrence: None)
  Receive Date: 20051024
  Receipt Date: 20050824
  Transmission Date: 20060501
  Serious: Yes (Other)
  Sender: FDA-Public Use
  Company Number: 216595

PATIENT
  Age: 66 Year
  Sex: Female
  Weight: 93.4 kg

DRUGS (7)
  1. XOLAIR [Suspect]
     Indication: ASTHMA
     Dosage: 300 MG,Q2W, SUBCUTANEOUS
     Route: 058
     Dates: start: 20041101, end: 20050715
  2. XOLAIR [Suspect]
     Indication: ASTHMA
     Dosage: 300 MG,Q2W, SUBCUTANEOUS
     Route: 058
     Dates: start: 20040428
  3. XOPENEX [Concomitant]
  4. PULMICORT INHALER (BUDESONIDE) [Concomitant]
  5. ALBUTEROL INHALER (ALBUTEROL, ALBUTEROL SULFATE) [Concomitant]
  6. PREDNISONE [Concomitant]
  7. FLONASE NASAL SPRAY (FLUTICASONE PROPIONATE) [Concomitant]

REACTIONS (1)
  - BREAST CANCER [None]
